FAERS Safety Report 25590328 (Version 1)
Quarter: 2025Q3

REPORT INFORMATION
  Report Type: Other
  Country: US (occurrence: US)
  Receive Date: 20250722
  Receipt Date: 20250722
  Transmission Date: 20251020
  Serious: Yes (Hospitalization, Other)
  Sender: ANI
  Company Number: US-ANIPHARMA-023669

PATIENT
  Age: 60 Year
  Sex: Female

DRUGS (6)
  1. LORAZEPAM [Suspect]
     Active Substance: LORAZEPAM
     Indication: Agitation
  2. LITHIUM [Suspect]
     Active Substance: LITHIUM
     Indication: Bipolar disorder
  3. ZIPRASIDONE [Concomitant]
     Active Substance: ZIPRASIDONE
     Indication: Bipolar disorder
  4. DULOXETINE [Concomitant]
     Active Substance: DULOXETINE
     Indication: Bipolar disorder
  5. HALOPERIDOL [Concomitant]
     Active Substance: HALOPERIDOL
     Indication: Agitation
  6. ZIPRASIDONE [Concomitant]
     Active Substance: ZIPRASIDONE
     Indication: Bipolar disorder

REACTIONS (1)
  - Neuroleptic malignant syndrome [Recovering/Resolving]
